FAERS Safety Report 13705726 (Version 2)
Quarter: 2017Q3

REPORT INFORMATION
  Report Type: Spontaneous
  Country: FI (occurrence: FI)
  Receive Date: 20170630
  Receipt Date: 20170824
  Transmission Date: 20171127
  Serious: Yes (Other)
  Sender: FDA-Public Use
  Company Number: FI-BAYER-2017-122315

PATIENT
  Age: 21 Year
  Sex: Female

DRUGS (6)
  1. JAYDESS [Suspect]
     Active Substance: LEVONORGESTREL
     Dosage: 14 MCG/24HR, CONT
     Route: 015
     Dates: start: 20170329, end: 201705
  2. SERETIDE [Concomitant]
     Active Substance: FLUTICASONE PROPIONATE\SALMETEROL XINAFOATE
     Indication: ASTHMA
     Dosage: UNK
  3. CYMBALTA [Concomitant]
     Active Substance: DULOXETINE HYDROCHLORIDE
     Dosage: 60 MG, UNK
  4. VENTOLINE [Concomitant]
     Active Substance: ALBUTEROL
     Indication: ASTHMA
     Dosage: UNK
  5. TEMESTA [Concomitant]
     Active Substance: LORAZEPAM
     Dosage: 1 MG, PRN
  6. CIRCADIN [Concomitant]
     Active Substance: MELATONIN
     Indication: INSOMNIA
     Dosage: UNK

REACTIONS (9)
  - Peripheral swelling [Recovered/Resolved]
  - Suicidal ideation [Recovered/Resolved]
  - Aggression [Recovered/Resolved]
  - Pain in extremity [Recovered/Resolved]
  - Depressed mood [Recovered/Resolved]
  - Hypoaesthesia [Recovered/Resolved]
  - Pain [None]
  - Impulsive behaviour [Recovered/Resolved]
  - Intentional medical device removal by patient [None]
